FAERS Safety Report 23597694 (Version 10)
Quarter: 2025Q3

REPORT INFORMATION
  Report Type: Report from Study
  Country: BR (occurrence: BR)
  Receive Date: 20240305
  Receipt Date: 20250929
  Transmission Date: 20251021
  Serious: Yes (Other)
  Sender: NOVARTIS
  Company Number: BR-002147023-NVSC2024BR011695

PATIENT
  Age: 48 Year
  Sex: Female
  Weight: 53 kg

DRUGS (11)
  1. KISQALI [Suspect]
     Active Substance: RIBOCICLIB SUCCINATE
     Indication: Metastases to bone
     Dosage: 3 DOSAGE FORM (200 MG), QD
     Route: 048
     Dates: start: 202309
  2. KISQALI [Suspect]
     Active Substance: RIBOCICLIB SUCCINATE
     Indication: Breast cancer
     Dosage: 2 DOSAGE FORM, QD
     Route: 048
     Dates: start: 20240909
  3. KISQALI [Suspect]
     Active Substance: RIBOCICLIB SUCCINATE
     Indication: Invasive breast carcinoma
     Dosage: 2 DOSAGE FORM (200 MG), QD (FOR 21 DAYS AND PAUSE FOR 14 DAYS)
     Route: 048
  4. KISQALI [Suspect]
     Active Substance: RIBOCICLIB SUCCINATE
     Indication: Breast cancer metastatic
     Dosage: 3 DOSAGE FORM (200 MG), QD (FOR 21 DAYS, BREAK FOR 7 (14) DAYS
     Route: 048
     Dates: start: 20250414, end: 20250505
  5. KISQALI [Suspect]
     Active Substance: RIBOCICLIB SUCCINATE
     Route: 065
  6. ZOMETA [Suspect]
     Active Substance: ZOLEDRONIC ACID
     Indication: Metastases to bone
     Dosage: 4 MG, 28D (FOR 2 YEARS, AFTER 2 YEARS FOR 6 MONTHS)
     Route: 042
     Dates: start: 2022
  7. LETROZOLE [Suspect]
     Active Substance: LETROZOLE
     Indication: Hormone therapy
     Dosage: 1 DOSAGE FORM, QD
     Route: 048
     Dates: start: 2023
  8. NORTRIPTYLINE [Concomitant]
     Active Substance: NORTRIPTYLINE
     Indication: Anxiety
     Dosage: 25 MG, QD (1 TABLET)
     Route: 048
     Dates: start: 2021
  9. GABAPENTIN [Concomitant]
     Active Substance: GABAPENTIN
     Indication: Neuralgia
     Dosage: 300 MG, Q8H (CAPSULE)
     Route: 048
     Dates: start: 2022
  10. GABAPENTIN [Concomitant]
     Active Substance: GABAPENTIN
     Dosage: 300 MG, BID (2 TABLETS)
     Route: 048
     Dates: start: 2022
  11. ATENOLOL [Concomitant]
     Active Substance: ATENOLOL
     Indication: Hypertension
     Dosage: 25 MG, QD (1 TABLET)
     Route: 048
     Dates: start: 2019

REACTIONS (12)
  - Decreased immune responsiveness [Recovered/Resolved]
  - Platelet count decreased [Recovered/Resolved]
  - Illness [Unknown]
  - Decreased immune responsiveness [Recovered/Resolved]
  - Neutrophil count decreased [Not Recovered/Not Resolved]
  - Mean cell volume increased [Not Recovered/Not Resolved]
  - Mean cell haemoglobin increased [Not Recovered/Not Resolved]
  - Red cell distribution width increased [Not Recovered/Not Resolved]
  - White blood cell count decreased [Not Recovered/Not Resolved]
  - Monocyte count decreased [Not Recovered/Not Resolved]
  - Lymphocyte count decreased [Recovered/Resolved]
  - Product prescribing error [Unknown]

NARRATIVE: CASE EVENT DATE: 20231212
